FAERS Safety Report 6800770-9 (Version None)
Quarter: 2010Q2

REPORT INFORMATION
  Report Type: 
  Country: None (occurrence: None)
  Receive Date: 20100629
  Receipt Date: 20100616
  Transmission Date: 20101027
  Serious: Yes (Other)
  Sender: FDA-Public Use
  Company Number: US-JNJFOC-20100607038

PATIENT
  Age: 9 Month
  Sex: Male

DRUGS (2)
  1. CONCENTRATED TYLENOL INFANT DROPS [Suspect]
     Indication: INFECTIOUS MONONUCLEOSIS
     Dosage: 80 MG/0.8 ML
     Route: 048
  2. CONCENTRATED TYLENOL INFANT DROPS [Suspect]
     Indication: EAR INFECTION
     Dosage: 80 MG/0.8 ML
     Route: 048

REACTIONS (3)
  - CONVULSION [None]
  - PRODUCT QUALITY ISSUE [None]
  - RASH [None]
